FAERS Safety Report 11590117 (Version 2)
Quarter: 2015Q4

REPORT INFORMATION
  Report Type: Spontaneous
  Country: US (occurrence: AR)
  Receive Date: 20151002
  Receipt Date: 20151124
  Transmission Date: 20160304
  Serious: Yes (Death, Other)
  Sender: FDA-Public Use
  Company Number: US-PFIZER INC-2015283584

PATIENT
  Age: 78 Year
  Sex: Male
  Weight: 80 kg

DRUGS (1)
  1. SUNITINIB MALATE. [Suspect]
     Active Substance: SUNITINIB MALATE
     Indication: GASTROINTESTINAL STROMAL TUMOUR
     Dosage: 50 MG, ONCE A DAY FOR 4 WEEKS ON, THEN OFF FOR TWO WEEKS, CYCLIC
     Dates: start: 201505

REACTIONS (5)
  - Nausea [Unknown]
  - Haemorrhage [Unknown]
  - Poisoning [Unknown]
  - Myocardial infarction [Fatal]
  - Dyspepsia [Unknown]

NARRATIVE: CASE EVENT DATE: 2015
